FAERS Safety Report 8414520-6 (Version None)
Quarter: 2012Q2

REPORT INFORMATION
  Report Type: 
  Country: None (occurrence: None)
  Receive Date: 20120605
  Receipt Date: 20120525
  Transmission Date: 20120825
  Serious: Yes (Hospitalization)
  Sender: FDA-Public Use
  Company Number: CA-PFIZER INC-2012112944

PATIENT
  Age: 68 Year
  Sex: Male
  Weight: 108.9 kg

DRUGS (31)
  1. ACETYLSALICYLIC ACID [Concomitant]
     Dosage: 81 MG, 1X/DAY
     Route: 048
  2. SENNA [Concomitant]
     Dosage: 17.2 MG, 1X/DAY AT BEDTIME
     Route: 048
  3. HUMALOG [Concomitant]
     Dosage: 6-8 IU, 3X/DAY WITH MEALS
     Route: 058
  4. CALCIUM CARBONATE [Concomitant]
     Dosage: 1250 MG, 2X/DAY
     Route: 048
  5. DARBEPOETIN ALFA [Concomitant]
     Dosage: 60 UG, 1X/DAY
     Route: 058
  6. FERROUS FUMARATE [Concomitant]
     Dosage: 300 MG, 2X/DAY WITH BREAKFAST AND WITH DINNER
     Route: 048
  7. BLINDED THERAPY [Suspect]
     Dosage: 7 MG, 1X/DAY
     Dates: start: 20120411, end: 20120417
  8. ALFUZOSIN [Concomitant]
     Dosage: 10 MG, 1X/DAY
  9. BLINDED THERAPY [Suspect]
     Dosage: 2 MG, 1X/DAY
     Dates: start: 20120328, end: 20120403
  10. RAMIPRIL [Concomitant]
     Dosage: 10 MG, 1X/DAY
     Route: 048
  11. HUMULIN R [Concomitant]
     Dosage: 20 IU, 2X/DAY
  12. FLUTICASONE [Concomitant]
     Dosage: 50 UG, 1 PUFF TWICE DAILY AS NEEDED
     Route: 055
  13. EFFEXOR XR [Suspect]
     Dosage: 75 MG IN THE MORNING AND 37.5 MG IN THE EVENING
     Dates: start: 20120206, end: 20120229
  14. BLINDED THERAPY [Suspect]
     Dosage: 10 MG, 1X/DAY
     Dates: start: 20120418, end: 20120426
  15. RHINOCORT [Concomitant]
     Dosage: 64 UG, DAILY
  16. CYCLOBENZAPRINE [Concomitant]
     Dosage: 10 MG, 1X/DAY
  17. VENTOLIN [Concomitant]
     Dosage: 100 UG, AS NEEDED
  18. VITAMIN D [Concomitant]
     Dosage: 1000 IU, 2X/DAY
     Route: 048
  19. DOCUSATE SODIUM [Concomitant]
     Dosage: 200 MG, 2X/DAY
     Route: 048
  20. EFFEXOR XR [Suspect]
     Dosage: 37.5 MG, 1X/DAY
     Dates: start: 20120106, end: 20120112
  21. EFFEXOR XR [Suspect]
     Dosage: 37.5 MG, 2X/DAY
     Dates: start: 20120130, end: 20120205
  22. BLINDED THERAPY [Suspect]
     Dosage: 5 MG, 1X/DAY
     Dates: start: 20120404, end: 20120410
  23. ALLOPURINOL [Concomitant]
     Dosage: 200 MG, DAILY
     Route: 048
  24. ADVAIR DISKUS 100/50 [Concomitant]
     Dosage: 50 UG, 2X/DAILY AS NEEDED
     Route: 055
  25. LANTUS [Concomitant]
     Dosage: 6 IU, 2X/DAY AT BREAKFAST AND SUPPER
     Route: 058
  26. EFFEXOR XR [Suspect]
     Dosage: 75 MG, 1X/DAY
     Dates: start: 20120113, end: 20120129
  27. EFFEXOR XR [Suspect]
     Dosage: 75 MG, 2X/DAY
     Dates: start: 20120301
  28. TERAZOSIN [Concomitant]
     Dosage: 10 MG, 1X/DAY
  29. ATORVASTATIN [Concomitant]
     Dosage: 40 MG, 1X/DAY AT BEDTIME
     Route: 048
  30. FUROSEMIDE [Concomitant]
     Dosage: 80 MG, 2X/DAY
     Route: 048
  31. SALBUTAMOL [Concomitant]
     Dosage: 200 UG, EVERY 4 HOURS AS NEEDED
     Route: 055

REACTIONS (1)
  - ACUTE MYOCARDIAL INFARCTION [None]
